FAERS Safety Report 4401467-5 (Version None)
Quarter: 2004Q3

REPORT INFORMATION
  Report Type: 
  Country: None (occurrence: None)
  Receive Date: 20040907
  Receipt Date: 20040518
  Transmission Date: 20050211
  Serious: No
  Sender: FDA-Public Use
  Company Number: US-BRISTOL-MYERS SQUIBB COMPANY-12590071

PATIENT
  Age: 80 Year
  Sex: Female
  Weight: 62 kg

DRUGS (2)
  1. COUMADIN [Suspect]
     Indication: CARDIAC DISORDER
  2. COUMADIN [Suspect]
     Indication: BLOOD VISCOSITY INCREASED

REACTIONS (1)
  - INTERNATIONAL NORMALISED RATIO DECREASED [None]
